FAERS Safety Report 10433229 (Version 1)
Quarter: 2014Q3

REPORT INFORMATION
  Report Type: Spontaneous
  Country: IN (occurrence: IN)
  Receive Date: 20140905
  Receipt Date: 20140905
  Transmission Date: 20150326
  Serious: Yes (Other)
  Sender: FDA-Public Use
  Company Number: IN-ROXANE LABORATORIES, INC.-2014-RO-01317RO

PATIENT
  Age: 52 Year
  Sex: Male

DRUGS (2)
  1. AMLODIPINE [Suspect]
     Active Substance: AMLODIPINE BESYLATE
     Indication: HYPERTENSION
     Dosage: 20 MG
     Route: 065
  2. ATORVOSTATIN [Suspect]
     Active Substance: ATORVASTATIN
     Indication: DYSLIPIDAEMIA
     Dosage: 10 MG
     Route: 065

REACTIONS (5)
  - Metabolic acidosis [Unknown]
  - Rhabdomyolysis [Unknown]
  - Renal failure acute [Unknown]
  - Tubulointerstitial nephritis [Unknown]
  - Hyperkalaemia [Unknown]
